FAERS Safety Report 8345583-4 (Version None)
Quarter: 2012Q2

REPORT INFORMATION
  Report Type: 
  Country: None (occurrence: None)
  Receive Date: 20120508
  Receipt Date: 20120426
  Transmission Date: 20120825
  Serious: Yes (Other)
  Sender: FDA-Public Use
  Company Number: CH-ROCHE-1064527

PATIENT
  Sex: Male

DRUGS (3)
  1. XOLAIR [Suspect]
     Dates: start: 20120424
  2. XOLAIR [Suspect]
     Indication: PRODUCT USED FOR UNKNOWN INDICATION
     Route: 065
  3. XOLAIR [Suspect]
     Dates: start: 20120419

REACTIONS (2)
  - HYPERSENSITIVITY [None]
  - ANAPHYLACTOID REACTION [None]
